FAERS Safety Report 6994593-8 (Version None)
Quarter: 2010Q3

REPORT INFORMATION
  Report Type: 
  Country: None (occurrence: None)
  Receive Date: 20100916
  Receipt Date: 20100916
  Transmission Date: 20110219
  Serious: Yes (Other)
  Sender: FDA-Public Use
  Company Number: None

PATIENT
  Age: 34 Year
  Sex: Male
  Weight: 95.2554 kg

DRUGS (2)
  1. CLONAZEPAM [Suspect]
     Indication: GENERALISED ANXIETY DISORDER
     Dosage: 2MG EVERY MORNING PO
     Route: 048
     Dates: start: 20100110, end: 20100910
  2. CLONAZEPAM [Suspect]
     Indication: PANIC DISORDER
     Dosage: 2MG EVERY MORNING PO
     Route: 048
     Dates: start: 20100110, end: 20100910

REACTIONS (5)
  - CONDITION AGGRAVATED [None]
  - DRUG EFFECT DECREASED [None]
  - DRUG LEVEL DECREASED [None]
  - PANIC ATTACK [None]
  - PRODUCT SUBSTITUTION ISSUE [None]
